FAERS Safety Report 6489795-3 (Version None)
Quarter: 2009Q4

REPORT INFORMATION
  Report Type: 
  Country: None (occurrence: None)
  Receive Date: 20091207
  Receipt Date: 20091118
  Transmission Date: 20100525
  Serious: Yes (Hospitalization)
  Sender: FDA-Public Use
  Company Number: 09-ADE-SU-0034-ACT

PATIENT
  Age: 8 Month
  Sex: Male

DRUGS (2)
  1. H P ACTHAR [Suspect]
     Indication: INFANTILE SPASMS
     Dosage: 80 U SC BID - 6 WK TAPER
     Route: 058
     Dates: start: 20090923, end: 20091101
  2. PHENOBARBITAL [Concomitant]

REACTIONS (5)
  - DECREASED APPETITE [None]
  - DIET REFUSAL [None]
  - HYPERTENSION [None]
  - RESPIRATORY TRACT INFECTION [None]
  - WEIGHT INCREASED [None]
